FAERS Safety Report 8926816 (Version 1)
Quarter: 2012Q4

REPORT INFORMATION
  Report Type: 
  Country: US (occurrence: US)
  Receive Date: 20121127
  Receipt Date: 20121127
  Transmission Date: 20130627
  Serious: No
  Sender: FDA-Public Use
  Company Number: US-009507513-1211USA002350

PATIENT

DRUGS (1)
  1. ZEGERID OTC CAPSULES [Suspect]
     Indication: PRODUCT USED FOR UNKNOWN INDICATION
     Dosage: UNK, qd
     Route: 048

REACTIONS (2)
  - Dyspepsia [Unknown]
  - Incorrect drug administration duration [Unknown]
